FAERS Safety Report 4602917-1 (Version None)
Quarter: 2005Q1

REPORT INFORMATION
  Report Type: 
  Country: None (occurrence: None)
  Receive Date: 20050307
  Receipt Date: 20050221
  Transmission Date: 20050727
  Serious: Yes (Death)
  Sender: FDA-Public Use
  Company Number: 2005035846

PATIENT
  Age: 67 Year
  Sex: Male

DRUGS (5)
  1. CELEBREX [Suspect]
     Indication: OSTEOARTHRITIS
     Dosage: 200 MG (200 MG, 1 IN 1 D), ORAL
     Route: 048
     Dates: start: 20041123, end: 20041123
  2. CORDARONE [Concomitant]
  3. LOSAPREX (LOSARTAN POTASSIUM) [Concomitant]
  4. CARDIOASPIRIN (ACETYLSALICYCLIC ACID) [Concomitant]
  5. BI EUGLUCON (GLIBENCLAMIDE, METFORMIN) [Concomitant]

REACTIONS (3)
  - CARDIAC ARREST [None]
  - DYSPNOEA [None]
  - MALAISE [None]
